FAERS Safety Report 10707126 (Version 1)
Quarter: 2015Q1

REPORT INFORMATION
  Report Type: Spontaneous
  Country: US (occurrence: None)
  Receive Date: 20150112
  Receipt Date: 20150112
  Transmission Date: 20150721
  Serious: Yes (Life-Threatening, Disabling, Other)
  Sender: FDA-Public Use
  Company Number: None

PATIENT
  Age: 51 Year
  Sex: Male
  Weight: 136.08 kg

DRUGS (1)
  1. DEPO-TESTOSTERONE [Suspect]
     Active Substance: TESTOSTERONE CYPIONATE
     Indication: BLOOD TESTOSTERONE DECREASED
     Dosage: INJECT 1ML IM EVERY OTHER WEEK, EVERY OTHER WEEK, INTO THE MUSCLE
     Route: 030
     Dates: start: 20140811, end: 20141223

REACTIONS (4)
  - Pain in extremity [None]
  - Groin pain [None]
  - Deep vein thrombosis [None]
  - Venous thrombosis [None]

NARRATIVE: CASE EVENT DATE: 20150108
